FAERS Safety Report 9174235 (Version 3)
Quarter: 2013Q2

REPORT INFORMATION
  Report Type: Spontaneous
  Country: DE (occurrence: None)
  Receive Date: 20130318
  Receipt Date: 20130422
  Transmission Date: 20140414
  Serious: Yes (Hospitalization)
  Sender: FDA-Public Use
  Company Number: SYM-2013-01588

PATIENT
  Age: 56 Year
  Sex: Male

DRUGS (3)
  1. 5-FU [Suspect]
     Indication: COLORECTAL CANCER METASTATIC
     Route: 040
     Dates: start: 20130211, end: 20130211
  2. IRINOTECAN [Suspect]
     Indication: COLORECTAL CANCER METASTATIC
     Route: 042
     Dates: start: 20130211, end: 20130211
  3. LEUCOVORIN (FOLINIC ACID) (SOLUTION FOR INFUSION) (FOLIC ACID) [Suspect]
     Indication: COLORECTAL CANCER METASTATIC
     Route: 042
     Dates: start: 20130211, end: 20130211

REACTIONS (3)
  - Hypertension [None]
  - Cardiac hypertrophy [None]
  - Hypertensive heart disease [None]
